FAERS Safety Report 7551417-8 (Version None)
Quarter: 2011Q2

REPORT INFORMATION
  Report Type: 
  Country: None (occurrence: None)
  Receive Date: 20110616
  Receipt Date: 20110608
  Transmission Date: 20111010
  Serious: Yes (Hospitalization)
  Sender: FDA-Public Use
  Company Number: GB-ROCHE-778775

PATIENT
  Age: 16 Year
  Sex: Male

DRUGS (1)
  1. ACCUTANE [Suspect]
     Route: 065
     Dates: start: 20030101, end: 20050101

REACTIONS (5)
  - DEPRESSION [None]
  - PAIN [None]
  - SCAR [None]
  - CROHN'S DISEASE [None]
  - MALAISE [None]
